FAERS Safety Report 17455697 (Version 2)
Quarter: 2020Q2

REPORT INFORMATION
  Report Type: Spontaneous
  Country: US (occurrence: US)
  Receive Date: 20200225
  Receipt Date: 20200407
  Transmission Date: 20200713
  Serious: No
  Sender: FDA-Public Use
  Company Number: US-BAYER-2020-033076

PATIENT
  Age: 20 Year
  Sex: Female
  Weight: 55.78 kg

DRUGS (1)
  1. SKYLA [Suspect]
     Active Substance: LEVONORGESTREL
     Indication: CONTRACEPTION
     Dosage: 14 ?G PER DAY CONTINUOUSLY
     Route: 015
     Dates: start: 20200224, end: 20200302

REACTIONS (1)
  - Expired device used [Recovered/Resolved]

NARRATIVE: CASE EVENT DATE: 20200224
